FAERS Safety Report 7032133-8 (Version None)
Quarter: 2010Q4

REPORT INFORMATION
  Report Type: 
  Country: None (occurrence: None)
  Receive Date: 20101001
  Receipt Date: 20100922
  Transmission Date: 20110411
  Serious: Yes (Hospitalization)
  Sender: FDA-Public Use
  Company Number: CAP10000384

PATIENT
  Sex: Female

DRUGS (1)
  1. ACTONEL [Suspect]
     Indication: OSTEOPOROSIS POSTMENOPAUSAL
     Dosage: 150 MG ONCE MONTHLY, ORAL
     Route: 048
     Dates: start: 20100501, end: 20100101

REACTIONS (3)
  - DYSPNOEA [None]
  - HYPOKINESIA [None]
  - MUSCLE SPASMS [None]
